FAERS Safety Report 8390605-8 (Version None)
Quarter: 2012Q2

REPORT INFORMATION
  Report Type: 
  Country: None (occurrence: None)
  Receive Date: 20120529
  Receipt Date: 20120521
  Transmission Date: 20120825
  Serious: Yes (Hospitalization, Other)
  Sender: FDA-Public Use
  Company Number: US-BAYER-201026594NA

PATIENT
  Age: 23 Year
  Sex: Female
  Weight: 52 kg

DRUGS (2)
  1. ASPIRIN [Concomitant]
     Dosage: UNK UNK, QD
     Dates: start: 20090618
  2. YAZ [Suspect]
     Indication: CONTRACEPTION
     Dosage: UNK UNK, QD
     Route: 048
     Dates: start: 20080701, end: 20080901

REACTIONS (5)
  - PAIN IN EXTREMITY [None]
  - ERYTHEMA [None]
  - DEEP VEIN THROMBOSIS [None]
  - ABASIA [None]
  - OEDEMA PERIPHERAL [None]
